FAERS Safety Report 7265990-0 (Version None)
Quarter: 2011Q1

REPORT INFORMATION
  Report Type: 
  Country: None (occurrence: None)
  Receive Date: 20110131
  Receipt Date: 20110127
  Transmission Date: 20110831
  Serious: Yes (Hospitalization, Congenital Anomaly)
  Sender: FDA-Public Use
  Company Number: GXKR2011DE00747

PATIENT
  Sex: Male
  Weight: 2.89 kg

DRUGS (4)
  1. LAMOTRIGINE [Suspect]
     Dosage: MATERNAL DOSE: 325 MG/D
     Route: 064
  2. FOLIC ACID [Concomitant]
     Indication: PROPHYLAXIS OF NEURAL TUBE DEFECT
     Route: 064
  3. VALPROIC ACID [Suspect]
     Dosage: MATERNAL DOSE: (500-500-750) MG/D
     Route: 064
  4. LEVETIRACETAM [Suspect]
     Dosage: MATERNAL DOSE: 3X 250 MG/D
     Route: 064

REACTIONS (12)
  - LOW SET EARS [None]
  - LIP DISORDER [None]
  - NEONATAL RESPIRATORY DISTRESS SYNDROME [None]
  - DYSMORPHISM [None]
  - HYPOTONIA NEONATAL [None]
  - HEAD DEFORMITY [None]
  - FEEDING DISORDER NEONATAL [None]
  - SPINAL CORD DISORDER [None]
  - AGITATION NEONATAL [None]
  - NOSE DEFORMITY [None]
  - DRUG EXPOSURE DURING PREGNANCY [None]
  - HAND DEFORMITY [None]
